FAERS Safety Report 9697181 (Version 1)
Quarter: 2013Q4

REPORT INFORMATION
  Report Type: Spontaneous
  Country: TW (occurrence: TW)
  Receive Date: 20131120
  Receipt Date: 20131120
  Transmission Date: 20140711
  Serious: Yes (Other)
  Sender: FDA-Public Use
  Company Number: TW-ROCHE-1302933

PATIENT
  Age: 55 Year
  Sex: Male
  Weight: 75 kg

DRUGS (13)
  1. MYCOPHENOLATE MOFETIL [Suspect]
     Indication: PROPHYLAXIS AGAINST TRANSPLANT REJECTION
     Route: 065
  2. MYCOPHENOLATE MOFETIL [Suspect]
     Dosage: TWICE (750MG AND 500MG) DAILY
     Route: 065
  3. MYCOPHENOLATE MOFETIL [Suspect]
     Route: 065
  4. SIROLIMUS [Concomitant]
     Indication: PROPHYLAXIS AGAINST TRANSPLANT REJECTION
     Route: 065
     Dates: end: 20130214
  5. TACROLIMUS [Concomitant]
     Indication: PROPHYLAXIS AGAINST TRANSPLANT REJECTION
     Route: 065
     Dates: start: 20130214
  6. BISOPROLOL [Concomitant]
     Indication: HYPERTENSION
     Route: 065
  7. GLIMEPIRIDE [Concomitant]
     Indication: DIABETES MELLITUS
     Route: 065
  8. PIOGLITAZONE [Concomitant]
     Indication: DIABETES MELLITUS
     Route: 065
  9. SITAGLIPTIN PHOSPHATE [Concomitant]
     Indication: DIABETES MELLITUS
     Route: 065
  10. ALLOPURINOL [Concomitant]
     Route: 065
  11. COLCHICINE [Concomitant]
     Route: 065
  12. ROSUVASTATIN [Concomitant]
     Route: 065
  13. CANDESARTAN [Concomitant]
     Indication: HYPERTENSION
     Route: 065

REACTIONS (3)
  - Kidney fibrosis [Unknown]
  - Renal tubular atrophy [Unknown]
  - Diabetic nephropathy [Unknown]
